FAERS Safety Report 4287233-2 (Version None)
Quarter: 2004Q1

REPORT INFORMATION
  Report Type: 
  Country: None (occurrence: None)
  Receive Date: 20040126
  Receipt Date: 20031110
  Transmission Date: 20041129
  Serious: No
  Sender: FDA-Public Use
  Company Number: USA031152158

PATIENT
  Age: 78 Year
  Sex: Female
  Weight: 55 kg

DRUGS (4)
  1. FORTEO [Suspect]
     Indication: OSTEOPOROSIS
     Dosage: 20 UG/DAILY
     Dates: start: 20030501
  2. VIOXX [Concomitant]
  3. ENDURON (METHCLOTHIAZIDE) [Concomitant]
  4. CALCIUM [Concomitant]

REACTIONS (2)
  - ALOPECIA [None]
  - SKIN DISORDER [None]
